FAERS Safety Report 10436062 (Version 1)
Quarter: 2014Q3

REPORT INFORMATION
  Report Type: Spontaneous
  Country: US (occurrence: None)
  Receive Date: 20140904
  Receipt Date: 20140904
  Transmission Date: 20150326
  Serious: Yes (Hospitalization, Other)
  Sender: FDA-Public Use
  Company Number: US-ZYDUS-004433

PATIENT
  Age: 15 Year
  Sex: Female

DRUGS (1)
  1. ESCITALOPRAM [Suspect]
     Active Substance: ESCITALOPRAM OXALATE

REACTIONS (5)
  - Intentional overdose [None]
  - Suicide attempt [None]
  - Torsade de pointes [None]
  - Electrocardiogram QT prolonged [None]
  - Long QT syndrome congenital [None]
